FAERS Safety Report 23232413 (Version 1)
Quarter: 2023Q4

REPORT INFORMATION
  Report Type: Report from Study
  Country: US (occurrence: None)
  Receive Date: 20231128
  Receipt Date: 20231128
  Transmission Date: 20240110
  Serious: Yes (Hospitalization)
  Sender: FDA-Public Use
  Company Number: 2023A264826

PATIENT
  Sex: Female

DRUGS (1)
  1. LYNPARZA [Suspect]
     Active Substance: OLAPARIB
     Indication: Lymphoma
     Route: 048
     Dates: start: 20230821

REACTIONS (7)
  - Renal impairment [Unknown]
  - Vomiting [Unknown]
  - Weight decreased [Unknown]
  - Dehydration [Unknown]
  - Headache [Unknown]
  - Dizziness [Unknown]
  - Abdominal discomfort [Unknown]
